FAERS Safety Report 4873254-5 (Version None)
Quarter: 2006Q1

REPORT INFORMATION
  Report Type: 
  Country: None (occurrence: None)
  Receive Date: 20060105
  Receipt Date: 20051230
  Transmission Date: 20060701
  Serious: Yes (Hospitalization)
  Sender: FDA-Public Use
  Company Number: PHRM2005FR03424

PATIENT
  Age: 64 Year
  Sex: Male
  Weight: 42 kg

DRUGS (10)
  1. KARDEGIC [Concomitant]
     Route: 048
  2. TRIATEC [Suspect]
     Dosage: 2.5 MG, QD
     Route: 048
  3. ESIDRIX [Suspect]
     Dosage: 25 MG, QD
     Route: 048
  4. NORSET [Suspect]
     Dosage: 45 MG/DAY
     Route: 048
     Dates: start: 20051020, end: 20051023
  5. VALIUM [Suspect]
     Dosage: 10 MG, QD
     Route: 048
     Dates: start: 20051020, end: 20051109
  6. XATRAL - SLOW RELEASE [Suspect]
     Dosage: 10 MG, QD
     Route: 048
  7. GARDENAL [Suspect]
     Dosage: 100 MG, TID
     Route: 048
  8. TOPALGIC [Concomitant]
     Route: 048
  9. VITAMIN B1 AND B6 [Concomitant]
  10. FONZYLANE [Concomitant]
     Route: 048

REACTIONS (5)
  - DIZZINESS [None]
  - FALL [None]
  - LOSS OF CONSCIOUSNESS [None]
  - MALAISE [None]
  - VISION BLURRED [None]
